FAERS Safety Report 5238889-9 (Version None)
Quarter: 2007Q1

REPORT INFORMATION
  Report Type: 
  Country: None (occurrence: None)
  Receive Date: 20070215
  Receipt Date: 20070206
  Transmission Date: 20070707
  Serious: Yes (Death, Other)
  Sender: FDA-Public Use
  Company Number: FR-PFIZER INC-2007010360

PATIENT
  Age: 84 Year
  Sex: Male

DRUGS (2)
  1. CELEBREX [Suspect]
  2. CELIPROLOL HYDROCHLORIDE [Concomitant]

REACTIONS (1)
  - CARDIAC ARREST [None]
